FAERS Safety Report 21878948 (Version 1)
Quarter: 2023Q1

REPORT INFORMATION
  Report Type: Spontaneous
  Country: US (occurrence: None)
  Receive Date: 20230117
  Receipt Date: 20230117
  Transmission Date: 20230418
  Serious: Yes (Hospitalization)
  Sender: FDA-Public Use
  Company Number: None

PATIENT
  Age: 73 Year
  Sex: Female
  Weight: 82.28 kg

DRUGS (22)
  1. LENALIDOMIDE [Suspect]
     Active Substance: LENALIDOMIDE
     Indication: Plasma cell myeloma
     Dosage: OTHER FREQUENCY : 3W,1WOFF;?
     Route: 048
     Dates: start: 20210712
  2. BACLOFEN [Concomitant]
  3. CARVEDILOL [Concomitant]
     Active Substance: CARVEDILOL
  4. CULTURELLE DIGESTIVE HEALTH [Concomitant]
  5. CYANOCOBALAMIN [Concomitant]
     Active Substance: CYANOCOBALAMIN
  6. ECOTRIN LOW STRENGTH [Concomitant]
  7. ELDERTONIC [Concomitant]
  8. ENALAPRIL MALEATE [Concomitant]
  9. FERROUS SULFATE [Concomitant]
  10. FEXOFENADINE HCI [Concomitant]
  11. MEGESTROL ACETATE [Concomitant]
  12. PROTONIX [Concomitant]
  13. SIMVASTATIN [Concomitant]
  14. SUCRALFATE [Concomitant]
  15. FLUTICASONE PROPIONATE [Concomitant]
  16. GLIMEPIRIDE [Concomitant]
  17. IMODIUM A-D [Concomitant]
     Active Substance: LOPERAMIDE HYDROCHLORIDE
  18. LEVOTHYROXINE SODIUM [Concomitant]
  19. MAGNESIUM OXIDE-MG SUPPLEMENT [Concomitant]
  20. TRAMADOL HCI [Concomitant]
  21. VITAMIN D3 [Concomitant]
     Active Substance: CHOLECALCIFEROL
  22. ZOFRAN [Concomitant]

REACTIONS (2)
  - Nephrolithiasis [None]
  - Therapy interrupted [None]
